FAERS Safety Report 18862092 (Version 4)
Quarter: 2021Q1

REPORT INFORMATION
  Report Type: Spontaneous
  Country: JP (occurrence: JP)
  Receive Date: 20210208
  Receipt Date: 20210308
  Transmission Date: 20210420
  Serious: Yes (Hospitalization, Other)
  Sender: FDA-Public Use
  Company Number: NVSJ2021JP001899

PATIENT
  Age: 0 Year
  Sex: Male

DRUGS (65)
  1. ILARIS [Suspect]
     Active Substance: CANAKINUMAB
     Dosage: 240 MG
     Route: 064
     Dates: start: 20181009
  2. ILARIS [Suspect]
     Active Substance: CANAKINUMAB
     Dosage: 240 MG
     Route: 064
     Dates: start: 20190813
  3. ILARIS [Suspect]
     Active Substance: CANAKINUMAB
     Dosage: 300 MG
     Route: 064
     Dates: start: 20200326
  4. ILARIS [Suspect]
     Active Substance: CANAKINUMAB
     Dosage: 240 MG
     Route: 064
     Dates: start: 20200616
  5. BACTRAMIN [Concomitant]
     Active Substance: SULFAMETHOXAZOLE\TRIMETHOPRIM
     Indication: FOETAL EXPOSURE DURING PREGNANCY
     Dosage: MATERNAL DOSE: 1 DF
     Route: 064
     Dates: start: 20171124, end: 20200709
  6. BACTRAMIN [Concomitant]
     Active Substance: SULFAMETHOXAZOLE\TRIMETHOPRIM
     Dosage: 1 DF
     Route: 064
     Dates: start: 20201105
  7. METOCLOPRAMIDE. [Concomitant]
     Active Substance: METOCLOPRAMIDE
     Indication: FOETAL EXPOSURE DURING PREGNANCY
     Dosage: MATERNAL DOSE: 5 MG
     Route: 064
     Dates: start: 20191108, end: 20191110
  8. METOCLOPRAMIDE. [Concomitant]
     Active Substance: METOCLOPRAMIDE
     Dosage: 5 MG
     Route: 064
     Dates: start: 20200326, end: 20200717
  9. LIMETHASON [Concomitant]
     Active Substance: DEXAMETHASONE
     Dosage: MATERNAL DOSE: 5 MG
     Route: 064
     Dates: start: 20200119, end: 20200120
  10. ILARIS [Suspect]
     Active Substance: CANAKINUMAB
     Dosage: 240 MG
     Route: 064
     Dates: start: 20180911
  11. ILARIS [Suspect]
     Active Substance: CANAKINUMAB
     Dosage: 240 MG
     Route: 064
     Dates: start: 20190204
  12. ILARIS [Suspect]
     Active Substance: CANAKINUMAB
     Dosage: 240 MG
     Route: 064
     Dates: start: 20190401
  13. PREDNISOLONE. [Concomitant]
     Active Substance: PREDNISOLONE
     Indication: FOETAL EXPOSURE DURING PREGNANCY
     Dosage: MATERNAL DOSE: 20 MG
     Route: 064
     Dates: start: 200703, end: 20200129
  14. FERROUS CITRATE NA [Concomitant]
     Active Substance: SODIUM FERROUS CITRATE
     Indication: FOETAL EXPOSURE DURING PREGNANCY
     Dosage: MATERNAL DOSE: 50 MG
     Route: 064
     Dates: start: 20190108
  15. KEFLEX [Concomitant]
     Active Substance: CEPHALEXIN
     Indication: FOETAL EXPOSURE DURING PREGNANCY
     Dosage: MATERNAL DOSE: 1000 MG
     Route: 064
     Dates: start: 20190321, end: 20190322
  16. CEFAZOLIN SODIUM. [Concomitant]
     Active Substance: CEFAZOLIN SODIUM
     Indication: FOETAL EXPOSURE DURING PREGNANCY
     Dosage: MATERNAL DOSE: 2 G
     Route: 064
     Dates: start: 20190320, end: 20190320
  17. MIYA?BM [Concomitant]
     Active Substance: CLOSTRIDIUM BUTYRICUM SPORES STRAIN M-55
     Indication: FOETAL EXPOSURE DURING PREGNANCY
     Dosage: MATERNAL DOSE: 3 DF
     Route: 064
     Dates: start: 20200731, end: 20200813
  18. SAWACILLIN [Concomitant]
     Active Substance: AMOXICILLIN
     Indication: FOETAL EXPOSURE DURING PREGNANCY
     Dosage: MATERNAL DOSE: UNK
     Route: 064
     Dates: start: 20200801, end: 202008
  19. ILARIS [Suspect]
     Active Substance: CANAKINUMAB
     Indication: FOETAL EXPOSURE DURING PREGNANCY
     Dosage: 240 MG
     Route: 064
     Dates: start: 20180816
  20. ILARIS [Suspect]
     Active Substance: CANAKINUMAB
     Dosage: 232.5 MG
     Route: 064
     Dates: start: 20190304
  21. ILARIS [Suspect]
     Active Substance: CANAKINUMAB
     Dosage: 240 MG
     Route: 064
     Dates: start: 20190423
  22. ILARIS [Suspect]
     Active Substance: CANAKINUMAB
     Dosage: 300 MG
     Route: 064
     Dates: start: 20200521
  23. RINDERON V [Concomitant]
     Active Substance: BETAMETHASONE VALERATE
     Indication: FOETAL EXPOSURE DURING PREGNANCY
     Dosage: MATERNAL DOSE: 1 G
     Route: 064
     Dates: start: 20190906
  24. HIRUDOID [Concomitant]
     Active Substance: GLYCOSAMINOGLYCANS
     Indication: FOETAL EXPOSURE DURING PREGNANCY
     Dosage: MATERNAL DOSE: 2 G
     Route: 064
     Dates: start: 20181211
  25. RIKAVERIN [Concomitant]
     Indication: FOETAL EXPOSURE DURING PREGNANCY
     Dosage: UMATERNAL DOSE: UNK
     Route: 064
     Dates: start: 20200801, end: 20200812
  26. ILARIS [Suspect]
     Active Substance: CANAKINUMAB
     Dosage: 240 MG
     Route: 064
     Dates: start: 20181113
  27. ILARIS [Suspect]
     Active Substance: CANAKINUMAB
     Dosage: 270 MG
     Route: 064
     Dates: start: 20191206
  28. PRALIA [Concomitant]
     Active Substance: DENOSUMAB
     Indication: FOETAL EXPOSURE DURING PREGNANCY
     Dosage: MATERNAL DOSE: 60 MG
     Route: 064
     Dates: start: 20180214, end: 20200717
  29. CLENAFIN [Concomitant]
     Active Substance: EFINACONAZOLE
     Indication: FOETAL EXPOSURE DURING PREGNANCY
     Dosage: 0.5 ML
     Route: 064
     Dates: start: 20191105, end: 20191121
  30. MEDICON [Concomitant]
     Active Substance: DEXTROMETHORPHAN HYDROBROMIDE
     Dosage: MATERNAL DOSE: 45 MG
     Route: 048
     Dates: start: 20190520, end: 20190526
  31. ACETAMINOPHEN. [Concomitant]
     Active Substance: ACETAMINOPHEN
     Indication: FOETAL EXPOSURE DURING PREGNANCY
     Dosage: MATERNAL DOSE: 500 MG, PRN
     Route: 064
     Dates: start: 20191029, end: 20191104
  32. DACTIL [Concomitant]
     Indication: FOETAL EXPOSURE DURING PREGNANCY
     Dosage: MATERNAL DOSE: UNK
     Route: 064
     Dates: start: 20200801, end: 20200813
  33. ILARIS [Suspect]
     Active Substance: CANAKINUMAB
     Dosage: 270 MG
     Route: 064
     Dates: start: 20200109
  34. ILARIS [Suspect]
     Active Substance: CANAKINUMAB
     Dosage: 300 MG
     Route: 064
     Dates: start: 20200717
  35. FAMOTIDINE. [Concomitant]
     Active Substance: FAMOTIDINE
     Indication: FOETAL EXPOSURE DURING PREGNANCY
     Dosage: MATERNAL DOSE: 20 MG
     Route: 064
     Dates: start: 20140529
  36. LOXONIN [Concomitant]
     Active Substance: LOXOPROFEN SODIUM
     Indication: FOETAL EXPOSURE DURING PREGNANCY
     Dosage: MATERNAL DOSE: 100 MG
     Route: 064
     Dates: start: 20180119
  37. AZULFIDINE [Concomitant]
     Active Substance: SULFASALAZINE
     Indication: FOETAL EXPOSURE DURING PREGNANCY
     Dosage: 1000 MG
     Route: 064
     Dates: start: 20181113, end: 20190116
  38. RELENZA [Concomitant]
     Active Substance: ZANAMIVIR
     Indication: FOETAL EXPOSURE DURING PREGNANCY
     Dosage: MATERNAL DOSE: 10 MG
     Route: 064
     Dates: start: 20190225, end: 20190315
  39. LIMETHASON [Concomitant]
     Active Substance: DEXAMETHASONE
     Indication: FOETAL EXPOSURE DURING PREGNANCY
     Dosage: MATERNAL DOSE: 5 MG
     Route: 064
     Dates: start: 20191029, end: 20191031
  40. ILARIS [Suspect]
     Active Substance: CANAKINUMAB
     Dosage: 270 MG
     Route: 064
     Dates: start: 20191107
  41. ILARIS [Suspect]
     Active Substance: CANAKINUMAB
     Dosage: 300 MG
     Route: 064
     Dates: start: 20200813
  42. PREDNISOLONE. [Concomitant]
     Active Substance: PREDNISOLONE
     Dosage: 30 MG
     Route: 064
     Dates: start: 20200130, end: 20200812
  43. MUCODYNE [Concomitant]
     Active Substance: CARBOCYSTEINE
     Indication: FOETAL EXPOSURE DURING PREGNANCY
     Dosage: MATERNAL DOSE: 1500 MG
     Route: 064
     Dates: start: 20190304, end: 20190313
  44. MUCODYNE [Concomitant]
     Active Substance: CARBOCYSTEINE
     Dosage: MATERNAL DOSE: 1500 MG
     Route: 064
     Dates: start: 20190520, end: 20190526
  45. BIO?THREE [Concomitant]
     Active Substance: HERBALS
     Indication: FOETAL EXPOSURE DURING PREGNANCY
     Dosage: MATERNAL DOSE: 3 DF
     Route: 064
     Dates: start: 20191105, end: 20191121
  46. LIMETHASON [Concomitant]
     Active Substance: DEXAMETHASONE
     Dosage: MATERNAL DOSE: 5 MG
     Route: 064
     Dates: start: 20191104, end: 20191106
  47. HEPARIN [Concomitant]
     Active Substance: HEPARIN SODIUM
     Indication: FOETAL EXPOSURE DURING PREGNANCY
     Dosage: MATERNAL DOSE: 5000 IU
     Route: 064
     Dates: start: 20191029, end: 20191103
  48. PLATELETS [Concomitant]
     Active Substance: HUMAN PLATELET, ALLOGENIC
     Indication: FOETAL EXPOSURE DURING PREGNANCY
     Dosage: MATERNAL DOSE: 20 IU (FOR 3 DAYS)
     Route: 064
     Dates: start: 20210119, end: 20210129
  49. ILARIS [Suspect]
     Active Substance: CANAKINUMAB
     Dosage: 240 MG
     Route: 064
     Dates: start: 20181211
  50. ILARIS [Suspect]
     Active Substance: CANAKINUMAB
     Dosage: 240 MG
     Route: 064
     Dates: start: 20190108
  51. ILARIS [Suspect]
     Active Substance: CANAKINUMAB
     Dosage: 255 MG
     Route: 064
     Dates: start: 20190724
  52. ILARIS [Suspect]
     Active Substance: CANAKINUMAB
     Dosage: 270 MG
     Route: 064
     Dates: start: 20200130
  53. ILARIS [Suspect]
     Active Substance: CANAKINUMAB
     Dosage: 270 MG
     Route: 064
     Dates: start: 20200227
  54. ILARIS [Suspect]
     Active Substance: CANAKINUMAB
     Dosage: 240 MG
     Route: 064
     Dates: start: 20200421
  55. PROGRAF [Concomitant]
     Active Substance: TACROLIMUS
     Indication: FOETAL EXPOSURE DURING PREGNANCY
     Dosage: MATERNAL DOSE: 4 MG
     Route: 064
     Dates: start: 20160215
  56. SOLU?MEDROL [Concomitant]
     Active Substance: METHYLPREDNISOLONE SODIUM SUCCINATE
     Indication: FOETAL EXPOSURE DURING PREGNANCY
     Dosage: MATERNAL DOSE: 1000 MG
     Route: 064
     Dates: start: 20191101, end: 20191103
  57. SOLU?MEDROL [Concomitant]
     Active Substance: METHYLPREDNISOLONE SODIUM SUCCINATE
     Dosage: MATERNAL DOSE: 1000 MG
     Route: 064
     Dates: start: 20200116, end: 20200118
  58. FRESH FROZEN PLASMA [Concomitant]
     Active Substance: HUMAN PLASMA
     Indication: FOETAL EXPOSURE DURING PREGNANCY
     Dosage: MATERNAL DOSE: 6 IU
     Route: 064
     Dates: start: 20210119, end: 20210119
  59. ILARIS [Suspect]
     Active Substance: CANAKINUMAB
     Dosage: 240 MG
     Route: 064
     Dates: start: 20190520
  60. ILARIS [Suspect]
     Active Substance: CANAKINUMAB
     Dosage: 240 MG
     Route: 064
     Dates: start: 20190625
  61. ILARIS [Suspect]
     Active Substance: CANAKINUMAB
     Dosage: 270 MG
     Route: 064
     Dates: start: 20190906
  62. ILARIS [Suspect]
     Active Substance: CANAKINUMAB
     Dosage: 240 MG
     Route: 064
     Dates: start: 20191001
  63. PREDNISOLONE. [Concomitant]
     Active Substance: PREDNISOLONE
     Dosage: MATERNAL DOSE: 18.50 MG
     Route: 064
     Dates: start: 20200813
  64. MEDICON [Concomitant]
     Active Substance: DEXTROMETHORPHAN HYDROBROMIDE
     Indication: FOETAL EXPOSURE DURING PREGNANCY
     Dosage: MATERNAL DOSE: 45 MG
     Route: 064
     Dates: start: 20190304, end: 20190313
  65. VENILON [Concomitant]
     Active Substance: HUMAN IMMUNOGLOBULIN G
     Indication: FOETAL EXPOSURE DURING PREGNANCY
     Dosage: MATERNAL DOSE: 30 G
     Route: 064
     Dates: start: 20191030, end: 20191030

REACTIONS (5)
  - Foetal exposure during pregnancy [Unknown]
  - Transient tachypnoea of the newborn [Unknown]
  - Low birth weight baby [Unknown]
  - Foetal growth restriction [Unknown]
  - Premature delivery [Unknown]

NARRATIVE: CASE EVENT DATE: 20210115
